FAERS Safety Report 21518766 (Version 1)
Quarter: 2022Q4

REPORT INFORMATION
  Report Type: Spontaneous
  Country: US (occurrence: None)
  Receive Date: 20221027
  Receipt Date: 20221027
  Transmission Date: 20230113
  Serious: No
  Sender: FDA-Public Use
  Company Number: None

PATIENT
  Age: 62 Year
  Sex: Male
  Weight: 80 kg

DRUGS (1)
  1. DAPTOMYCIN [Suspect]
     Active Substance: DAPTOMYCIN
     Indication: Bacteraemia
     Dosage: FREQUENCY : DAILY;?
     Route: 042
     Dates: start: 20221019

REACTIONS (4)
  - Rash [None]
  - Type IV hypersensitivity reaction [None]
  - Body temperature increased [None]
  - Dysphonia [None]

NARRATIVE: CASE EVENT DATE: 20221019
